FAERS Safety Report 13948169 (Version 1)
Quarter: 2017Q3

REPORT INFORMATION
  Report Type: Spontaneous
  Country: US (occurrence: US)
  Receive Date: 20170907
  Receipt Date: 20170907
  Transmission Date: 20171128
  Serious: Yes (Other)
  Sender: FDA-Public Use
  Company Number: None

PATIENT
  Age: 38 Year
  Sex: Female
  Weight: 52.2 kg

DRUGS (2)
  1. BABY ASPIRIN [Concomitant]
     Active Substance: ASPIRIN
  2. BOTOX [Suspect]
     Active Substance: ONABOTULINUMTOXINA
     Indication: HEADACHE
     Dosage: ?          QUANTITY:25 UNITS;OTHER ROUTE:INJECTED?

REACTIONS (3)
  - Muscle twitching [None]
  - Facial paralysis [None]
  - Eyelid ptosis [None]

NARRATIVE: CASE EVENT DATE: 20070927
